FAERS Safety Report 4895232-2 (Version None)
Quarter: 2006Q1

REPORT INFORMATION
  Report Type: 
  Country: None (occurrence: None)
  Receive Date: 20060130
  Receipt Date: 20060123
  Transmission Date: 20060701
  Serious: Yes (Other)
  Sender: FDA-Public Use
  Company Number: CA-GLAXOSMITHKLINE-A0590562A

PATIENT
  Sex: Male

DRUGS (5)
  1. AVANDIA [Suspect]
     Dosage: 8MG UNKNOWN
     Route: 048
  2. GASTROINTESTINAL DRUG [Suspect]
     Indication: DRUG USE FOR UNKNOWN INDICATION
     Route: 065
  3. PREVACID [Concomitant]
  4. METFORMIN [Concomitant]
     Route: 065
  5. GLYBURIDE [Concomitant]

REACTIONS (4)
  - CARDIAC FAILURE [None]
  - DRUG INTERACTION [None]
  - DYSPNOEA [None]
  - SWELLING [None]
